FAERS Safety Report 9030174 (Version 1)
Quarter: 2013Q1

REPORT INFORMATION
  Report Type: Spontaneous
  Country: US (occurrence: US)
  Receive Date: 20130125
  Receipt Date: 20130125
  Transmission Date: 20140127
  Serious: No
  Sender: FDA-Public Use
  Company Number: US-PFIZER INC-2013026530

PATIENT
  Age: 57 Year
  Sex: Female

DRUGS (2)
  1. REVATIO [Suspect]
     Indication: PRODUCT USED FOR UNKNOWN INDICATION
     Dosage: UNK
  2. LETAIRIS [Suspect]
     Indication: PULMONARY ARTERIAL HYPERTENSION
     Dosage: 10 MG, 1X/DAY
     Dates: start: 20120120

REACTIONS (1)
  - Nasopharyngitis [Unknown]
